FAERS Safety Report 11259427 (Version 1)
Quarter: 2015Q3

REPORT INFORMATION
  Report Type: Spontaneous
  Country: US (occurrence: None)
  Receive Date: 20150709
  Receipt Date: 20150709
  Transmission Date: 20151125
  Serious: Yes (Disabling, Other)
  Sender: FDA-Public Use
  Company Number: None

PATIENT
  Age: 30 Year
  Sex: Female
  Weight: 61.24 kg

DRUGS (8)
  1. COMPOUNDED T4 [Concomitant]
  2. T3 [Concomitant]
     Active Substance: LIOTHYRONINE SODIUM
  3. ZOFRAN [Concomitant]
     Active Substance: ONDANSETRON HYDROCHLORIDE
  4. LEVAQUIN [Suspect]
     Active Substance: LEVOFLOXACIN
     Indication: URINARY TRACT INFECTION
     Dosage: 1 PILL A DAY FOR 7 DAYS
     Route: 048
     Dates: start: 20150706, end: 20150707
  5. VITAMIN B12 [Concomitant]
     Active Substance: CYANOCOBALAMIN
  6. LEVAQUIN [Suspect]
     Active Substance: LEVOFLOXACIN
     Indication: SEXUALLY TRANSMITTED DISEASE
     Dosage: 1 PILL A DAY FOR 7 DAYS
     Route: 048
     Dates: start: 20150706, end: 20150707
  7. XANAX [Concomitant]
     Active Substance: ALPRAZOLAM
  8. NATURE MADE MULTIVITAMIN ONE A DAY [Concomitant]

REACTIONS (4)
  - Insomnia [None]
  - Peripheral coldness [None]
  - Formication [None]
  - Temperature regulation disorder [None]

NARRATIVE: CASE EVENT DATE: 20150707
